FAERS Safety Report 10769566 (Version 1)
Quarter: 2015Q1

REPORT INFORMATION
  Report Type: Spontaneous
  Country: BR (occurrence: None)
  Receive Date: 20150204
  Receipt Date: 20150204
  Transmission Date: 20150721
  Serious: Yes (Other)
  Sender: FDA-Public Use
  Company Number: BR-TORRENT-00002791

PATIENT
  Age: 61 Year
  Sex: Male

DRUGS (3)
  1. RESPIDON (INN:RISPERIDONE) [Suspect]
     Active Substance: RISPERIDONE
     Indication: HEAD INJURY
     Dosage: RESPIDON 2 MG ONCE AT NIGHT AND RESPIDON 1 MG ONCE IN THE AFTERNOON DAILY
     Route: 048
     Dates: start: 2007
  2. FINASTERIDE. [Concomitant]
     Active Substance: FINASTERIDE
  3. ATORVASTATIN [Concomitant]
     Active Substance: ATORVASTATIN

REACTIONS (9)
  - Face oedema [None]
  - Off label use [None]
  - Oedema peripheral [None]
  - Abdominal distension [None]
  - Erythema [None]
  - Pulmonary embolism [None]
  - Diverticulitis [None]
  - Prostatic specific antigen abnormal [None]
  - Paraesthesia oral [None]

NARRATIVE: CASE EVENT DATE: 2007
